FAERS Safety Report 4422857-0 (Version None)
Quarter: 2004Q3

REPORT INFORMATION
  Report Type: 
  Country: None (occurrence: None)
  Receive Date: 20040811
  Receipt Date: 20040730
  Transmission Date: 20050211
  Serious: Yes (Death, Hospitalization)
  Sender: FDA-Public Use
  Company Number: DE-JNJFOC-20040800590

PATIENT
  Sex: Male

DRUGS (55)
  1. LEVOFLOXACIN [Suspect]
     Route: 042
     Dates: start: 20031017, end: 20031017
  2. LEVOFLOXACIN [Suspect]
     Route: 042
  3. LEVOFLOXACIN [Suspect]
     Route: 042
  4. LEVOFLOXACIN [Suspect]
     Route: 042
  5. LEVOFLOXACIN [Suspect]
     Route: 042
  6. LEVOFLOXACIN [Suspect]
     Route: 042
  7. LEVOFLOXACIN [Suspect]
     Route: 042
  8. LEVOFLOXACIN [Suspect]
     Indication: PNEUMONIA
     Route: 042
  9. NEURONTIN [Concomitant]
     Indication: NEUROPATHY PERIPHERAL
     Route: 049
  10. TRICOR [Concomitant]
     Route: 049
  11. COLACE [Concomitant]
     Route: 049
  12. COLACE [Concomitant]
     Route: 049
  13. COLACE [Concomitant]
     Route: 049
  14. COLACE [Concomitant]
     Route: 049
  15. COLACE [Concomitant]
     Route: 049
  16. COLACE [Concomitant]
     Route: 049
  17. COLACE [Concomitant]
     Route: 049
  18. COLACE [Concomitant]
     Route: 049
  19. ISORDIL [Concomitant]
     Route: 049
  20. ISORDIL [Concomitant]
     Route: 049
  21. ISORDIL [Concomitant]
     Route: 049
  22. ISORDIL [Concomitant]
     Route: 049
  23. ISORDIL [Concomitant]
     Route: 049
  24. TYLENOL [Concomitant]
  25. TYLENOL [Concomitant]
  26. ROCEPHIN [Concomitant]
     Route: 042
  27. ROCEPHIN [Concomitant]
     Indication: PNEUMONIA
     Route: 042
  28. BACTRIM [Concomitant]
     Route: 042
  29. BACTRIM [Concomitant]
     Route: 042
  30. BACTRIM [Concomitant]
     Route: 042
  31. ANCEF [Concomitant]
     Route: 042
  32. VANCOMYCIN [Concomitant]
     Route: 042
  33. VANCOMYCIN [Concomitant]
     Route: 042
  34. VANCOMYCIN [Concomitant]
     Route: 042
  35. VANCOMYCIN [Concomitant]
     Route: 042
  36. CEFEPIME [Concomitant]
     Route: 042
  37. CEFEPIME [Concomitant]
     Route: 042
  38. SYNTHROID [Concomitant]
     Route: 049
  39. SYNTHROID [Concomitant]
     Route: 049
  40. SYNTHROID [Concomitant]
     Route: 049
  41. SOLU-MEDROL [Concomitant]
     Route: 042
  42. LASIX [Concomitant]
     Route: 042
  43. PREDNISONE [Concomitant]
     Route: 049
  44. ASPIRIN [Concomitant]
     Route: 049
  45. IMMUNE GLOBULIN INTRAVENOUS (HUMAN) [Concomitant]
     Route: 042
  46. BENADRYL [Concomitant]
     Route: 042
  47. PEPCID [Concomitant]
     Route: 042
  48. REGLAN [Concomitant]
  49. HUMAN INSULIN [Concomitant]
  50. REGULAR INSULIN [Concomitant]
  51. KAYEXALATE [Concomitant]
  52. LABETALOL HCL [Concomitant]
  53. EPOGEN [Concomitant]
  54. NEOSYNEPHRINE [Concomitant]
  55. LEVOPHED [Concomitant]

REACTIONS (13)
  - DIALYSIS [None]
  - DISEASE PROGRESSION [None]
  - ENCEPHALOPATHY [None]
  - GASTROINTESTINAL HAEMORRHAGE [None]
  - GENERAL PHYSICAL HEALTH DETERIORATION [None]
  - HEPATIC FAILURE [None]
  - HYPOTENSION [None]
  - PNEUMONITIS [None]
  - PULMONARY OEDEMA [None]
  - RENAL FAILURE ACUTE [None]
  - RESPIRATORY FAILURE [None]
  - SEPSIS [None]
  - SHOCK [None]
